FAERS Safety Report 4691146-1 (Version None)
Quarter: 2005Q2

REPORT INFORMATION
  Report Type: 
  Country: None (occurrence: None)
  Receive Date: 20050610
  Receipt Date: 20050601
  Transmission Date: 20051028
  Serious: Yes (Hospitalization)
  Sender: FDA-Public Use
  Company Number: 2005-04-0285

PATIENT
  Age: 59 Year
  Sex: Male
  Weight: 77 kg

DRUGS (3)
  1. CELESTAMINE (BETAMETHASOENE/DEXCHLORPHENIRAMINE MALEATE TABELTS [Suspect]
     Indication: RHINITIS ALLERGIC
     Dosage: 3 TABS ORAL
     Route: 048
     Dates: start: 20040801, end: 20050301
  2. CONTEL (BENIDIPINE HCL) [Concomitant]
  3. BENZBROMARONE TABLETS [Concomitant]

REACTIONS (4)
  - DYSPNOEA [None]
  - EOSINOPHIL COUNT INCREASED [None]
  - INTERSTITIAL LUNG DISEASE [None]
  - SWELLING FACE [None]
